FAERS Safety Report 6160760-9 (Version None)
Quarter: 2009Q2

REPORT INFORMATION
  Report Type: 
  Country: None (occurrence: None)
  Receive Date: 20090416
  Receipt Date: 20090403
  Transmission Date: 20091009
  Serious: Yes (Hospitalization)
  Sender: FDA-Public Use
  Company Number: 2009000691

PATIENT
  Age: 70 Year
  Sex: Female
  Weight: 73 kg

DRUGS (3)
  1. TARCEVA [Suspect]
     Indication: BILE DUCT CANCER
     Dosage: 100 MG, QD, ORAL
     Route: 048
     Dates: start: 20090129, end: 20090205
  2. GEMCITABINE [Suspect]
     Indication: NEOPLASM MALIGNANT
     Dosage: 5 MG/KG, INTRAVENOUS
     Route: 042
     Dates: start: 20090122, end: 20090122
  3. GEMCITABINE [Suspect]
     Indication: NEOPLASM MALIGNANT
     Dosage: 40 MG, QD/14 DAYS-7DAYS REST X 21 DAYS CYCLES, ORAL
     Route: 048
     Dates: start: 20090129

REACTIONS (4)
  - ATRIAL FIBRILLATION [None]
  - HEADACHE [None]
  - INFLUENZA LIKE ILLNESS [None]
  - PYREXIA [None]
